FAERS Safety Report 19703346 (Version 1)
Quarter: 2021Q3

REPORT INFORMATION
  Report Type: Other
  Country: DE (occurrence: DE)
  Receive Date: 20210816
  Receipt Date: 20210816
  Transmission Date: 20211014
  Serious: Yes (Hospitalization)
  Sender: FDA-Public Use
  Company Number: DE-MACLEODS PHARMA UK LTD-MAC2021032251

PATIENT

DRUGS (14)
  1. ALISKIREN FUMARATE/HYDROCHLOROTHIAZIDE [Suspect]
     Active Substance: ALISKIREN\HYDROCHLOROTHIAZIDE
     Indication: PRODUCT USED FOR UNKNOWN INDICATION
     Dosage: 12.5 MILLIGRAM, BID, 1?0?1?0
     Route: 065
  2. NALOXONE HYDROCHLORIDE /TILIDINE HYDROCHLORIDE [Suspect]
     Active Substance: NALOXONE HYDROCHLORIDE\TILIDINE HYDROCHLORIDE
     Indication: PRODUCT USED FOR UNKNOWN INDICATION
     Dosage: UNK, BID, 50/4MG, 1?0?0?1
     Route: 065
  3. ALLOPURINOL. [Suspect]
     Active Substance: ALLOPURINOL
     Indication: PRODUCT USED FOR UNKNOWN INDICATION
     Dosage: 300 MILLIGRAM, QD, 0?1?0?0
     Route: 065
  4. MACROGOL [Suspect]
     Active Substance: POLYETHYLENE GLYCOLS
     Indication: PRODUCT USED FOR UNKNOWN INDICATION
     Dosage: 13.8 GRAM, QD, 1?0?0?0
     Route: 065
  5. PANTOPRAZOLE 40 MG [Suspect]
     Active Substance: PANTOPRAZOLE SODIUM
     Indication: PRODUCT USED FOR UNKNOWN INDICATION
     Dosage: 40 MILLIGRAM, QD, 1?0?0?0
     Route: 065
  6. APIXABAN [Suspect]
     Active Substance: APIXABAN
     Indication: PRODUCT USED FOR UNKNOWN INDICATION
     Dosage: 5 MILLIGRAM, BID, 1?0?1?0
     Route: 065
  7. FOLSAEURE [Suspect]
     Active Substance: FOLIC ACID
     Indication: PRODUCT USED FOR UNKNOWN INDICATION
     Dosage: 0.4 MILLIGRAM, QD, 1?0?0?0
     Route: 065
  8. METAMIZOLE [Suspect]
     Active Substance: METAMIZOLE
     Indication: PRODUCT USED FOR UNKNOWN INDICATION
     Dosage: 500 MILLIGRAM, QID, 1?1?1?1
     Route: 065
  9. HYDROMORPHON/NALOXON [Suspect]
     Active Substance: HYDROMORPHONE HYDROCHLORIDE\NALOXONE HYDROCHLORIDE
     Indication: PRODUCT USED FOR UNKNOWN INDICATION
     Dosage: 1.3 MILLIGRAM, REQUIREMENT
     Route: 065
  10. VALSARTAN. [Suspect]
     Active Substance: VALSARTAN
     Indication: PRODUCT USED FOR UNKNOWN INDICATION
     Dosage: 80 MILLIGRAM, BID, 1?0?1?0
     Route: 065
  11. POTASSIUM CITRATE. [Suspect]
     Active Substance: POTASSIUM CITRATE
     Indication: PRODUCT USED FOR UNKNOWN INDICATION
     Dosage: 4.5 GRAM, BID
     Route: 065
  12. TORASEMIDE [Suspect]
     Active Substance: TORSEMIDE
     Indication: PRODUCT USED FOR UNKNOWN INDICATION
     Dosage: 5 MILLIGRAM, BID, 2?1?0?0
     Route: 065
  13. COLECALCIFEROL [Suspect]
     Active Substance: CHOLECALCIFEROL
     Indication: PRODUCT USED FOR UNKNOWN INDICATION
     Dosage: 1000 INTERNATIONAL UNIT, QD, 1000 IE, 1?0?0?0
     Route: 065
  14. TROSPIUM [Suspect]
     Active Substance: TROSPIUM
     Indication: PRODUCT USED FOR UNKNOWN INDICATION
     Dosage: 60 MILLIGRAM, QD, 1?0?0?0
     Route: 065

REACTIONS (3)
  - Dizziness [Unknown]
  - Dementia [Unknown]
  - Haematochezia [Unknown]
